FAERS Safety Report 24726983 (Version 1)
Quarter: 2024Q4

REPORT INFORMATION
  Report Type: Spontaneous
  Country: IE (occurrence: IE)
  Receive Date: 20241212
  Receipt Date: 20241212
  Transmission Date: 20250114
  Serious: Yes (Other)
  Sender: ADVANZ PHARMA
  Company Number: None

PATIENT

DRUGS (4)
  1. ZONEGRAN [Suspect]
     Active Substance: ZONISAMIDE
     Indication: Partial seizures
     Dosage: 200 MG  (CAPSULE, HARD)
     Route: 048
     Dates: start: 20141121, end: 20201108
  2. TEGRETOL [Suspect]
     Active Substance: CARBAMAZEPINE
     Indication: Partial seizures
     Dosage: 100 MG
     Route: 048
     Dates: start: 20111121, end: 20201121
  3. CLOBAZAM [Suspect]
     Active Substance: CLOBAZAM
     Indication: Partial seizures
     Dosage: 10 MG
     Route: 048
     Dates: start: 20111121, end: 20201121
  4. OLANZAPINE [Interacting]
     Active Substance: OLANZAPINE
     Indication: Partial seizures
     Dosage: UNK
     Dates: end: 202410

REACTIONS (7)
  - Drug interaction [Unknown]
  - Muscle spasms [Unknown]
  - Seizure [Unknown]
  - Blindness [Unknown]
  - Hallucinations, mixed [Unknown]
  - Overdose [Unknown]
  - Drug ineffective [Unknown]

NARRATIVE: CASE EVENT DATE: 20181121
